FAERS Safety Report 22007325 (Version 5)
Quarter: 2024Q3

REPORT INFORMATION
  Report Type: Report from Study
  Country: US (occurrence: US)
  Receive Date: 20230218
  Receipt Date: 20240729
  Transmission Date: 20241017
  Serious: Yes (Hospitalization, Other)
  Sender: ABBVIE
  Company Number: US-ABBVIE-4310520

PATIENT
  Sex: Female

DRUGS (5)
  1. HUMIRA [Suspect]
     Active Substance: ADALIMUMAB
     Indication: Colitis ulcerative
     Route: 058
     Dates: start: 20220916
  2. HUMIRA [Suspect]
     Active Substance: ADALIMUMAB
     Indication: Crohn^s disease
     Dosage: LAST ADMIN DATE: 2022
     Route: 058
     Dates: start: 20220624
  3. HUMIRA [Suspect]
     Active Substance: ADALIMUMAB
     Route: 058
  4. HUMIRA [Suspect]
     Active Substance: ADALIMUMAB
     Dosage: LAST ADMIN DATE: 2022
     Route: 058
     Dates: start: 20220616
  5. MOLNUPIRAVIR [Concomitant]
     Active Substance: MOLNUPIRAVIR
     Indication: Product used for unknown indication

REACTIONS (15)
  - Gastrointestinal disorder [Unknown]
  - Systemic lupus erythematosus [Unknown]
  - Tooth extraction [Unknown]
  - Vertigo [Recovering/Resolving]
  - Urinary tract infection [Recovering/Resolving]
  - Upper-airway cough syndrome [Not Recovered/Not Resolved]
  - Stress [Not Recovered/Not Resolved]
  - Sinusitis [Not Recovered/Not Resolved]
  - COVID-19 [Recovering/Resolving]
  - Vitamin D decreased [Not Recovered/Not Resolved]
  - Liver function test increased [Unknown]
  - Eye disorder [Recovering/Resolving]
  - Eye inflammation [Recovering/Resolving]
  - Noninfective gingivitis [Recovering/Resolving]
  - Blood test abnormal [Recovered/Resolved]

NARRATIVE: CASE EVENT DATE: 20220101
